FAERS Safety Report 5031245-8 (Version None)
Quarter: 2006Q2

REPORT INFORMATION
  Report Type: 
  Country: None (occurrence: None)
  Receive Date: 20060504
  Receipt Date: 20051117
  Transmission Date: 20061013
  Serious: Yes (Hospitalization)
  Sender: FDA-Public Use
  Company Number: SGB1-2005-00404

PATIENT
  Age: 46 Year
  Sex: Female

DRUGS (1)
  1. AGRYLIN [Suspect]
     Indication: ESSENTIAL THROMBOCYTHAEMIA
     Dosage: 0.5 MG,4X/DAY:QID,ORAL
     Route: 048
     Dates: end: 20050618

REACTIONS (1)
  - LEFT VENTRICULAR FAILURE [None]
